FAERS Safety Report 16971433 (Version 2)
Quarter: 2019Q4

REPORT INFORMATION
  Report Type: Spontaneous
  Country: US (occurrence: US)
  Receive Date: 20191029
  Receipt Date: 20191030
  Transmission Date: 20200122
  Serious: Yes (Other)
  Sender: FDA-Public Use
  Company Number: US-PFIZER INC-2019461104

PATIENT
  Age: 77 Year
  Sex: Female
  Weight: 165 kg

DRUGS (1)
  1. XALKORI [Suspect]
     Active Substance: CRIZOTINIB
     Indication: NON-SMALL CELL LUNG CANCER
     Dosage: 250 MG, 2X/DAY
     Route: 048
     Dates: start: 2019, end: 2019

REACTIONS (6)
  - Cerebrovascular accident [Unknown]
  - Oedema peripheral [Unknown]
  - Brain oedema [Unknown]
  - Oedema [Recovered/Resolved]
  - Blindness [Unknown]
  - Weight increased [Unknown]

NARRATIVE: CASE EVENT DATE: 2019
